FAERS Safety Report 6672412-7 (Version None)
Quarter: 2010Q2

REPORT INFORMATION
  Report Type: 
  Country: None (occurrence: None)
  Receive Date: 20100406
  Receipt Date: 20100324
  Transmission Date: 20101027
  Serious: Yes (Hospitalization)
  Sender: FDA-Public Use
  Company Number: 003861

PATIENT
  Sex: Female
  Weight: 90 kg

DRUGS (5)
  1. CERTOLIZUMAB PEGOL (CERTOLIZUMAB PEGOL) [Suspect]
     Indication: RHEUMATOID ARTHRITIS
     Dosage: (400 MG 1X/2 WEEKS SUBSUTANEOUS), (200 MG, ONCE EVERY TWO WEEKS SUBCUTANEOUS)
     Route: 058
     Dates: start: 20051017, end: 20080218
  2. CERTOLIZUMAB PEGOL (CERTOLIZUMAB PEGOL) [Suspect]
     Indication: RHEUMATOID ARTHRITIS
     Dosage: (400 MG 1X/2 WEEKS SUBSUTANEOUS), (200 MG, ONCE EVERY TWO WEEKS SUBCUTANEOUS)
     Route: 058
     Dates: start: 20080218, end: 20100105
  3. METHOTREXATE [Concomitant]
  4. FOLIC ACID [Concomitant]
  5. METOPROLOL TARTRATE [Concomitant]

REACTIONS (12)
  - ANAEMIA [None]
  - BACK PAIN [None]
  - BLOOD PRESSURE INCREASED [None]
  - BRONCHITIS [None]
  - HERPES ZOSTER [None]
  - NASOPHARYNGITIS [None]
  - ORAL HERPES [None]
  - PNEUMONIA [None]
  - PUBIS FRACTURE [None]
  - RHINITIS [None]
  - SCOLIOSIS [None]
  - UTERINE CANCER [None]
